FAERS Safety Report 5079563-1 (Version None)
Quarter: 2006Q3

REPORT INFORMATION
  Report Type: 
  Country: None (occurrence: None)
  Receive Date: 20060811
  Receipt Date: 20060811
  Transmission Date: 20061208
  Serious: No
  Sender: FDA-Public Use
  Company Number: None

PATIENT
  Sex: Female
  Weight: 45.3597 kg

DRUGS (1)
  1. FORTEO [Suspect]
     Indication: OSTEOPOROSIS
     Dosage: 20 MCG  QD   SQ
     Route: 058
     Dates: start: 20060529, end: 20060714

REACTIONS (7)
  - BACK PAIN [None]
  - CHEST PAIN [None]
  - DYSGEUSIA [None]
  - ERYTHEMA [None]
  - INFECTION [None]
  - NAUSEA [None]
  - PAIN IN EXTREMITY [None]
